FAERS Safety Report 5880123 (Version 7)
Quarter: 2015Q1

REPORT INFORMATION
  Report Type: Report from Study
  Country: US (occurrence: US)
  Receive Date: 20050908
  Receipt Date: 20150128
  Transmission Date: 20150721
  Serious: Yes (Hospitalization, Other)
  Sender: FDA-Public Use
  Company Number: 2005BI015931

PATIENT
  Age: 49 Year
  Sex: Female

DRUGS (1)
  1. AVONEX [Suspect]
     Active Substance: INTERFERON BETA-1A
     Indication: MULTIPLE SCLEROSIS
     Route: 030
     Dates: start: 20020623, end: 20091017

REACTIONS (8)
  - Cystopexy [Recovered/Resolved]
  - Exostosis [Recovered/Resolved]
  - Thyroid cancer recurrent [Recovered/Resolved]
  - Urethral disorder [Recovered/Resolved]
  - Thyroid cancer [Recovered/Resolved]
  - Suture related complication [Recovered/Resolved]
  - Nerve compression [Recovered/Resolved]
  - Cough [Recovered/Resolved]

NARRATIVE: CASE EVENT DATE: 2003
